FAERS Safety Report 14922396 (Version 5)
Quarter: 2021Q1

REPORT INFORMATION
  Report Type: Spontaneous
  Country: US (occurrence: US)
  Receive Date: 20180522
  Receipt Date: 20210331
  Transmission Date: 20210419
  Serious: No
  Sender: FDA-Public Use
  Company Number: US-PFIZER INC-2018207145

PATIENT
  Age: 69 Year
  Sex: Female
  Weight: 62 kg

DRUGS (4)
  1. XELJANZ XR [Suspect]
     Active Substance: TOFACITINIB CITRATE
     Indication: RHEUMATOID ARTHRITIS
     Dosage: 11 MG, DAILY (TABLETS BY MOUTH DAILY)
     Route: 048
     Dates: start: 201712, end: 201908
  2. XELJANZ XR [Suspect]
     Active Substance: TOFACITINIB CITRATE
     Dosage: 11 MG, DAILY
     Route: 048
     Dates: start: 201908
  3. METHOTREXATE. [Concomitant]
     Active Substance: METHOTREXATE
     Indication: RHEUMATOID ARTHRITIS
     Dosage: UNK
  4. METHOTREXATE. [Concomitant]
     Active Substance: METHOTREXATE
     Dosage: UNK, WEEKLY (EVERY TUEDAY)

REACTIONS (14)
  - Limb mass [Unknown]
  - Neck pain [Unknown]
  - Tenderness [Unknown]
  - Weight increased [Unknown]
  - Immune system disorder [Unknown]
  - Rhinitis allergic [Unknown]
  - Upper-airway cough syndrome [Unknown]
  - Hypersensitivity [Not Recovered/Not Resolved]
  - Dysphonia [Not Recovered/Not Resolved]
  - Pain in extremity [Unknown]
  - Feeling cold [Unknown]
  - Illness [Unknown]
  - Arthralgia [Unknown]
  - Nasopharyngitis [Not Recovered/Not Resolved]

NARRATIVE: CASE EVENT DATE: 20180515
